FAERS Safety Report 8808383 (Version 3)
Quarter: 2013Q2

REPORT INFORMATION
  Report Type: Spontaneous
  Country: US (occurrence: US)
  Receive Date: 20120926
  Receipt Date: 20130617
  Transmission Date: 20140414
  Serious: Yes (Hospitalization)
  Sender: FDA-Public Use
  Company Number: US-BAYER-2012-098253

PATIENT
  Age: 30 Year
  Sex: Female
  Weight: 107.3 kg

DRUGS (4)
  1. YAZ [Suspect]
  2. YASMIN [Suspect]
  3. OCELLA [Suspect]
  4. SINGULAIR [Concomitant]

REACTIONS (2)
  - Pulmonary embolism [None]
  - Injury [None]
